FAERS Safety Report 17297937 (Version 4)
Quarter: 2021Q4

REPORT INFORMATION
  Report Type: Report from Study
  Country: None (occurrence: US)
  Receive Date: 20200122
  Receipt Date: 20211014
  Transmission Date: 20220303
  Serious: Yes (Other)
  Sender: FDA-Public Use
  Company Number: US-PCYC-2019PHC24800

PATIENT
  Age: 70 Year
  Sex: Male

DRUGS (12)
  1. IMBRUVICA [Suspect]
     Active Substance: IBRUTINIB
     Indication: Waldenstrom^s macroglobulinaemia
     Dosage: 140 MG, QD
     Route: 048
     Dates: start: 201802
  2. IMBRUVICA [Suspect]
     Active Substance: IBRUTINIB
     Dosage: 420 MG, QD
     Route: 048
     Dates: start: 20181223
  3. IMBRUVICA [Suspect]
     Active Substance: IBRUTINIB
     Indication: Waldenstrom^s macroglobulinaemia
     Dosage: 420 MG, QD
     Route: 048
  4. IMBRUVICA [Suspect]
     Active Substance: IBRUTINIB
     Dosage: 420 MG, QD
     Route: 048
     Dates: start: 20190718
  5. IMBRUVICA [Suspect]
     Active Substance: IBRUTINIB
     Dosage: 420 MG, QD
     Route: 048
     Dates: start: 20190117
  6. IMBRUVICA [Suspect]
     Active Substance: IBRUTINIB
     Route: 048
  7. IMBRUVICA [Suspect]
     Active Substance: IBRUTINIB
     Route: 048
  8. IMBRUVICA [Suspect]
     Active Substance: IBRUTINIB
     Route: 048
     Dates: start: 20190119
  9. IMBRUVICA [Suspect]
     Active Substance: IBRUTINIB
     Route: 048
     Dates: start: 201901
  10. IMBRUVICA [Suspect]
     Active Substance: IBRUTINIB
     Route: 048
  11. IMBRUVICA [Suspect]
     Active Substance: IBRUTINIB
     Route: 048
  12. ELIQUIS [Suspect]
     Active Substance: APIXABAN
     Indication: Product used for unknown indication
     Dosage: UNK
     Route: 065

REACTIONS (13)
  - Atrial fibrillation [Recovering/Resolving]
  - Blood immunoglobulin M increased [Not Recovered/Not Resolved]
  - Incorrect dose administered [Unknown]
  - Feeding disorder [Unknown]
  - Speech disorder [Unknown]
  - Contusion [Unknown]
  - Fatigue [Recovered/Resolved]
  - Gastrooesophageal reflux disease [Unknown]
  - Cough [Unknown]
  - Dyspnoea [Unknown]
  - Therapeutic product effect decreased [Unknown]
  - Arthralgia [Recovering/Resolving]
  - Fatigue [Unknown]

NARRATIVE: CASE EVENT DATE: 20180201
